FAERS Safety Report 9689164 (Version 2)
Quarter: 2014Q1

REPORT INFORMATION
  Report Type: Spontaneous
  Country: CH (occurrence: CH)
  Receive Date: 20131114
  Receipt Date: 20140102
  Transmission Date: 20141002
  Serious: Yes (Life-Threatening, Other)
  Sender: FDA-Public Use
  Company Number: CH-TEVA-444091ISR

PATIENT
  Age: 28 Year
  Sex: Female
  Weight: 77 kg

DRUGS (3)
  1. IRFEN 400 [Suspect]
     Indication: DYSMENORRHOEA
     Route: 048
     Dates: start: 20131108, end: 20131108
  2. IMPLANON [Concomitant]
  3. FENIALLERG [Concomitant]

REACTIONS (5)
  - Angioedema [Recovered/Resolved]
  - Histamine intolerance [Unknown]
  - Hypersensitivity [Recovering/Resolving]
  - Urticaria [Recovering/Resolving]
  - Dyspnoea [Recovered/Resolved]
